FAERS Safety Report 9917786 (Version 1)
Quarter: 2014Q1

REPORT INFORMATION
  Report Type: Spontaneous
  Country: US (occurrence: US)
  Receive Date: 20140221
  Receipt Date: 20140221
  Transmission Date: 20141002
  Serious: No
  Sender: FDA-Public Use
  Company Number: US-PFIZER INC-2014051857

PATIENT
  Age: 80 Year
  Sex: Male
  Weight: 55.33 kg

DRUGS (1)
  1. LYRICA [Suspect]
     Indication: POST HERPETIC NEURALGIA
     Dosage: 50 MG, 1X/DAY
     Route: 048
     Dates: start: 2011, end: 2011

REACTIONS (1)
  - Drug ineffective [Unknown]
